FAERS Safety Report 9479558 (Version 1)
Quarter: 2013Q3

REPORT INFORMATION
  Report Type: Spontaneous
  Country: FR (occurrence: FR)
  Receive Date: 20130827
  Receipt Date: 20130827
  Transmission Date: 20140515
  Serious: Yes (Hospitalization)
  Sender: FDA-Public Use
  Company Number: FR-UCBSA-095924

PATIENT
  Age: 90 Year
  Sex: Female

DRUGS (1)
  1. KEPPRA [Suspect]
     Dosage: STRENGH : 1000 MG
     Route: 048
     Dates: start: 20130530, end: 20130612

REACTIONS (4)
  - Hepatocellular injury [Not Recovered/Not Resolved]
  - Cholestasis [Not Recovered/Not Resolved]
  - Faeces discoloured [Not Recovered/Not Resolved]
  - Jaundice [Not Recovered/Not Resolved]
